FAERS Safety Report 6997972-8 (Version None)
Quarter: 2010Q3

REPORT INFORMATION
  Report Type: 
  Country: None (occurrence: None)
  Receive Date: 20100920
  Receipt Date: 20100906
  Transmission Date: 20110219
  Serious: Yes (Other)
  Sender: FDA-Public Use
  Company Number: US-RANBAXY-2010US-37985

PATIENT

DRUGS (2)
  1. IBUPROFEN [Suspect]
     Indication: PAIN IN EXTREMITY
     Dosage: 600 MG TID
     Route: 048
  2. NAPROXEN [Suspect]
     Indication: PAIN IN EXTREMITY
     Dosage: 375 MG, TID
     Route: 048

REACTIONS (3)
  - ERYTHEMA [None]
  - PERIORBITAL OEDEMA [None]
  - PRURITUS [None]
